FAERS Safety Report 19493069 (Version 3)
Quarter: 2021Q3

REPORT INFORMATION
  Report Type: Report from Study
  Country: HK (occurrence: HK)
  Receive Date: 20210705
  Receipt Date: 20210823
  Transmission Date: 20211014
  Serious: Yes (Life-Threatening)
  Sender: FDA-Public Use
  Company Number: NVSC2021HK144681

PATIENT
  Age: 63 Year
  Sex: Female
  Weight: 55.7 kg

DRUGS (36)
  1. BISOLVON [Concomitant]
     Active Substance: BROMHEXINE HYDROCHLORIDE
     Indication: COUGH
     Dosage: UNK
     Route: 065
     Dates: start: 20191216
  2. PANADOL [Concomitant]
     Active Substance: ACETAMINOPHEN
     Indication: NON-SMALL CELL LUNG CANCER
     Dosage: UNK
     Route: 065
     Dates: start: 20200303, end: 20200413
  3. BLINDED CARBOPLATIN [Suspect]
     Active Substance: CARBOPLATIN
     Indication: NON-SMALL CELL LUNG CANCER
     Dosage: 470 MG, ONCE/SINGLE
     Route: 042
     Dates: start: 20191223, end: 20200324
  4. BLINDED NO TREATMENT RECEIVED [Suspect]
     Active Substance: INVESTIGATIONAL PRODUCT
     Indication: NON-SMALL CELL LUNG CANCER
     Dosage: 470 MG, ONCE/SINGLE
     Route: 042
     Dates: start: 20191223, end: 20200324
  5. BLINDED NAB PACLITAXEL [Suspect]
     Active Substance: PACLITAXEL
     Dosage: 470 MG, ONCE/SINGLE
     Route: 042
     Dates: start: 20200326
  6. CANAKINUMAB. [Suspect]
     Active Substance: CANAKINUMAB
     Dosage: UNK
     Route: 058
     Dates: start: 20200326
  7. BLINDED PACLITAXEL [Suspect]
     Active Substance: PACLITAXEL
     Indication: NON-SMALL CELL LUNG CANCER
     Dosage: 470 MG, ONCE/SINGLE
     Route: 042
     Dates: start: 20191223, end: 20200324
  8. BLINDED PEMBROLIZUMAB [Suspect]
     Active Substance: PEMBROLIZUMAB
     Indication: NON-SMALL CELL LUNG CANCER
     Dosage: 470 MG, ONCE/SINGLE
     Route: 042
     Dates: start: 20191223, end: 20200324
  9. BLINDED PACLITAXEL [Suspect]
     Active Substance: PACLITAXEL
     Dosage: 470 MG, ONCE/SINGLE
     Route: 042
     Dates: start: 20200326
  10. TRANSAMIN [Concomitant]
     Active Substance: TRANEXAMIC ACID
     Indication: NON-SMALL CELL LUNG CANCER
     Dosage: UNK
     Route: 065
     Dates: start: 20190910
  11. CLONAZEPAM. [Concomitant]
     Active Substance: CLONAZEPAM
     Indication: HERPES ZOSTER OTICUS
     Dosage: UNK
     Route: 065
     Dates: start: 20200305
  12. PEMETREXED COMP?PEME+CSOLINF [Suspect]
     Active Substance: PEMETREXED
     Dosage: 750 MG, ONCE/SINGLE
     Route: 042
     Dates: start: 20200326
  13. BLINDED ACZ885 [Suspect]
     Active Substance: CANAKINUMAB
     Indication: NON-SMALL CELL LUNG CANCER
     Dosage: 470 MG, ONCE/SINGLE
     Route: 042
     Dates: start: 20191223, end: 20200324
  14. BLINDED CISPLATIN [Suspect]
     Active Substance: CISPLATIN
     Dosage: 470 MG, ONCE/SINGLE
     Route: 042
     Dates: start: 20200326
  15. BLINDED PEMBROLIZUMAB [Suspect]
     Active Substance: PEMBROLIZUMAB
     Dosage: 470 MG, ONCE/SINGLE
     Route: 042
     Dates: start: 20200326
  16. PEMBROLIZUMAB COMP?PEMB+POWSOLINF [Suspect]
     Active Substance: PEMBROLIZUMAB
     Dosage: 200 MG, ONCE/SINGLE
     Route: 042
     Dates: start: 20200326
  17. FOLIC ACID. [Concomitant]
     Active Substance: FOLIC ACID
     Indication: NON-SMALL CELL LUNG CANCER
     Dosage: UNK
     Route: 065
     Dates: start: 20191216
  18. NORVASC [Concomitant]
     Active Substance: AMLODIPINE BESYLATE
     Indication: HYPERTENSION
     Dosage: UNK
     Route: 065
     Dates: start: 20180116
  19. FAMOTIDINE. [Concomitant]
     Active Substance: FAMOTIDINE
     Indication: NON-SMALL CELL LUNG CANCER
     Dosage: UNK
     Route: 065
     Dates: start: 20200303
  20. BLINDED ACZ885 [Suspect]
     Active Substance: CANAKINUMAB
     Dosage: 470 MG, ONCE/SINGLE
     Route: 042
     Dates: start: 20200326
  21. BLINDED CANAKINUMAB [Suspect]
     Active Substance: CANAKINUMAB
     Dosage: 470 MG, ONCE/SINGLE
     Route: 042
     Dates: start: 20200326
  22. CANAKINUMAB. [Suspect]
     Active Substance: CANAKINUMAB
     Indication: NON-SMALL CELL LUNG CANCER
     Dosage: UNK
     Route: 058
     Dates: start: 20191223, end: 20200324
  23. PEMBROLIZUMAB COMP?PEMB+POWSOLINF [Suspect]
     Active Substance: PEMBROLIZUMAB
     Indication: NON-SMALL CELL LUNG CANCER
     Dosage: 200 MG, ONCE/SINGLE
     Route: 042
     Dates: start: 20191223, end: 20200324
  24. VENTOLINE [Concomitant]
     Active Substance: ALBUTEROL
     Indication: NON-SMALL CELL LUNG CANCER
     Dosage: UNK
     Route: 065
     Dates: start: 20191129
  25. DEXAMETHASONE. [Concomitant]
     Active Substance: DEXAMETHASONE
     Indication: CHEMOTHERAPY SIDE EFFECT PROPHYLAXIS
     Dosage: UNK
     Route: 065
     Dates: start: 20200303, end: 20200305
  26. PEMETREXED COMP?PEME+CSOLINF [Suspect]
     Active Substance: PEMETREXED
     Indication: NON-SMALL CELL LUNG CANCER
     Dosage: 750 MG, ONCE/SINGLE
     Route: 042
     Dates: start: 20191223, end: 20200324
  27. BLINDED CANAKINUMAB [Suspect]
     Active Substance: CANAKINUMAB
     Indication: NON-SMALL CELL LUNG CANCER
     Dosage: 470 MG, ONCE/SINGLE
     Route: 042
     Dates: start: 20191223, end: 20200324
  28. BLINDED CISPLATIN [Suspect]
     Active Substance: CISPLATIN
     Indication: NON-SMALL CELL LUNG CANCER
     Dosage: 470 MG, ONCE/SINGLE
     Route: 042
     Dates: start: 20191223, end: 20200324
  29. BLINDED NAB PACLITAXEL [Suspect]
     Active Substance: PACLITAXEL
     Indication: NON-SMALL CELL LUNG CANCER
     Dosage: 470 MG, ONCE/SINGLE
     Route: 042
     Dates: start: 20191223, end: 20200324
  30. BLINDED PEMETREXED [Suspect]
     Active Substance: PEMETREXED
     Indication: NON-SMALL CELL LUNG CANCER
     Dosage: 470 MG, ONCE/SINGLE
     Route: 042
     Dates: start: 20191223, end: 20200324
  31. BLINDED CARBOPLATIN [Suspect]
     Active Substance: CARBOPLATIN
     Dosage: 470 MG, ONCE/SINGLE
     Route: 042
     Dates: start: 20200326
  32. PLACEBO [Suspect]
     Active Substance: UNSPECIFIED INGREDIENT
     Dosage: 470 MG, ONCE/SINGLE
     Route: 042
     Dates: start: 20200326
  33. KYTRIL [Concomitant]
     Active Substance: GRANISETRON HYDROCHLORIDE
     Indication: NON-SMALL CELL LUNG CANCER
     Dosage: UNK
     Route: 065
     Dates: start: 20200303, end: 20200303
  34. PLACEBO [Suspect]
     Active Substance: UNSPECIFIED INGREDIENT
     Indication: NON-SMALL CELL LUNG CANCER
     Dosage: 470 MG, ONCE/SINGLE
     Route: 042
     Dates: start: 20191223, end: 20200324
  35. BLINDED NO TREATMENT RECEIVED [Suspect]
     Active Substance: INVESTIGATIONAL PRODUCT
     Dosage: 470 MG, ONCE/SINGLE
     Route: 042
     Dates: start: 20200326
  36. BLINDED PEMETREXED [Suspect]
     Active Substance: PEMETREXED
     Dosage: 470 MG, ONCE/SINGLE
     Route: 042
     Dates: start: 20200326

REACTIONS (1)
  - Neutropenia [Recovered/Resolved]

NARRATIVE: CASE EVENT DATE: 20200318
